FAERS Safety Report 14675257 (Version 1)
Quarter: 2018Q1

REPORT INFORMATION
  Report Type: Other
  Country: None (occurrence: CA)
  Receive Date: 20180323
  Receipt Date: 20180323
  Transmission Date: 20180509
  Serious: Yes (Other)
  Sender: FDA-Public Use
  Company Number: CA-ALSI-201800183

PATIENT
  Age: 74 Year
  Sex: Female

DRUGS (4)
  1. CARBON DIOXIDE. [Suspect]
     Active Substance: CARBON DIOXIDE
     Indication: ENDOSCOPIC VESSEL HARVESTING
     Route: 058
  2. PANCURONIUM BROMIDE. [Concomitant]
     Active Substance: PANCURONIUM BROMIDE
  3. MIDAZOLAM [Concomitant]
     Active Substance: MIDAZOLAM HYDROCHLORIDE
  4. SUFENTANIL CITRATE. [Concomitant]
     Active Substance: SUFENTANIL CITRATE

REACTIONS (3)
  - Respiratory acidosis [Recovered/Resolved]
  - Air embolism [Recovered/Resolved]
  - Off label use [Recovered/Resolved]
